FAERS Safety Report 6327804-2 (Version None)
Quarter: 2009Q3

REPORT INFORMATION
  Report Type: 
  Country: None (occurrence: None)
  Receive Date: 20090824
  Receipt Date: 20090811
  Transmission Date: 20100115
  Serious: Yes (Death, Hospitalization)
  Sender: FDA-Public Use
  Company Number: 2009AL002228

PATIENT
  Age: 70 Year
  Sex: Male

DRUGS (20)
  1. DIGOXIN [Suspect]
     Dosage: 0.125MG, DAILY, PO
     Route: 048
     Dates: start: 20070301
  2. LIPITOR [Concomitant]
  3. COREG [Concomitant]
  4. ASPIRIN [Concomitant]
  5. DIOVAN [Concomitant]
  6. IMDUR [Concomitant]
  7. MAGNESIUM [Concomitant]
  8. POTASSIUM CHLORIDE [Concomitant]
  9. LASIX [Concomitant]
  10. COUMADIN [Concomitant]
  11. BACTRIM [Concomitant]
  12. AMBIEN [Concomitant]
  13. VALSARTAN [Concomitant]
  14. ISOSORBIDE DINITRATE [Concomitant]
  15. ATORVASTATIN [Concomitant]
  16. CARVEDILOL [Concomitant]
  17. GLIPIZIDE [Concomitant]
  18. COLCHICINE [Concomitant]
  19. TYLENOL (CAPLET) [Concomitant]
  20. K-DUR [Concomitant]

REACTIONS (24)
  - ANHEDONIA [None]
  - ANXIETY [None]
  - ARRHYTHMIA [None]
  - ARTHRALGIA [None]
  - ATRIAL FIBRILLATION [None]
  - CARDIAC FAILURE CONGESTIVE [None]
  - ECONOMIC PROBLEM [None]
  - EMOTIONAL DISORDER [None]
  - GOUT [None]
  - HYPERTENSION [None]
  - HYPOGLYCAEMIA [None]
  - HYPOTENSION [None]
  - INJURY [None]
  - ISCHAEMIC CARDIOMYOPATHY [None]
  - MENTAL DISORDER [None]
  - ORTHOPNOEA [None]
  - PAIN [None]
  - PULMONARY OEDEMA [None]
  - RENAL FAILURE CHRONIC [None]
  - THERAPEUTIC AGENT TOXICITY [None]
  - UNEVALUABLE EVENT [None]
  - URINARY TRACT INFECTION [None]
  - VENTRICULAR FIBRILLATION [None]
  - VENTRICULAR TACHYCARDIA [None]
